FAERS Safety Report 8569459-2 (Version None)
Quarter: 2012Q3

REPORT INFORMATION
  Report Type: 
  Country: None (occurrence: None)
  Receive Date: 20120803
  Receipt Date: 20120502
  Transmission Date: 20120928
  Serious: No
  Sender: FDA-Public Use
  Company Number: US-ABBOTT-12P-163-0931567-00

PATIENT
  Sex: Male

DRUGS (2)
  1. NIASPAN [Suspect]
     Indication: DRUG THERAPY
     Dosage: AT BEDTIME
     Dates: start: 20120428, end: 20120501
  2. ASPIRIN [Concomitant]
     Indication: PRODUCT USED FOR UNKNOWN INDICATION

REACTIONS (9)
  - HEADACHE [None]
  - MICTURITION URGENCY [None]
  - TREMOR [None]
  - FEELING OF BODY TEMPERATURE CHANGE [None]
  - DIARRHOEA [None]
  - CHILLS [None]
  - FEELING COLD [None]
  - FATIGUE [None]
  - ARTHRALGIA [None]
